FAERS Safety Report 6857287-5 (Version None)
Quarter: 2010Q3

REPORT INFORMATION
  Report Type: 
  Country: None (occurrence: None)
  Receive Date: 20100719
  Receipt Date: 20100708
  Transmission Date: 20110219
  Serious: Yes (Other)
  Sender: FDA-Public Use
  Company Number: DE-PFIZER INC-2010085183

PATIENT
  Age: 46 Year
  Sex: Male

DRUGS (1)
  1. ULTREON [Suspect]
     Indication: LYME DISEASE
     Dosage: 600 MG, 4 TIMES PER WEEK
     Route: 048

REACTIONS (4)
  - ABDOMINAL PAIN UPPER [None]
  - ARTHRALGIA [None]
  - MUSCULAR WEAKNESS [None]
  - WEIGHT DECREASED [None]
